FAERS Safety Report 13930853 (Version 1)
Quarter: 2017Q3

REPORT INFORMATION
  Report Type: Other
  Country: GB (occurrence: CA)
  Receive Date: 20170901
  Receipt Date: 20170901
  Transmission Date: 20171127
  Serious: Yes (Disabling, Other)
  Sender: FDA-Public Use
  Company Number: CA-INTERNATIONAL MEDICATION SYSTEMS, LIMITED-2025495

PATIENT
  Age: 49 Year
  Sex: Female

DRUGS (9)
  1. VASOPRESSIN. [Suspect]
     Active Substance: VASOPRESSIN
  2. EPINEPHRINE. [Suspect]
     Active Substance: EPINEPHRINE
  3. SHORT-ACTING INSULIN [Concomitant]
     Route: 040
  4. NOREPINEPHRINE. [Suspect]
     Active Substance: NOREPINEPHRINE
  5. NOREPINEPHRINE. [Suspect]
     Active Substance: NOREPINEPHRINE
  6. EPINEPHRINE. [Suspect]
     Active Substance: EPINEPHRINE
  7. EPINEPHRINE. [Suspect]
     Active Substance: EPINEPHRINE
  8. SHORT-ACTING INSULIN INFUSION [Concomitant]
  9. EPINEPHRINE. [Suspect]
     Active Substance: EPINEPHRINE
     Route: 040

REACTIONS (1)
  - Reversible cerebral vasoconstriction syndrome [Recovered/Resolved]
